FAERS Safety Report 9850339 (Version 1)
Quarter: 2014Q1

REPORT INFORMATION
  Report Type: Spontaneous
  Country: US (occurrence: None)
  Receive Date: 20140127
  Receipt Date: 20140127
  Transmission Date: 20141002
  Serious: Yes (Other)
  Sender: FDA-Public Use
  Company Number: None

PATIENT
  Age: 54 Year
  Sex: 0
  Weight: 88.45 kg

DRUGS (4)
  1. DULOXETINE [Suspect]
  2. LYRICA [Concomitant]
  3. ZIPITOR [Concomitant]
  4. ADVAIR [Concomitant]

REACTIONS (9)
  - Anxiety [None]
  - Chest discomfort [None]
  - Tremor [None]
  - Nightmare [None]
  - Headache [None]
  - Insomnia [None]
  - Product substitution issue [None]
  - Nausea [None]
  - Pain [None]
